FAERS Safety Report 9013944 (Version 1)
Quarter: 2013Q1

REPORT INFORMATION
  Report Type: Spontaneous
  Country: JP (occurrence: US)
  Receive Date: 20130115
  Receipt Date: 20130115
  Transmission Date: 20140127
  Serious: Yes (Hospitalization)
  Sender: FDA-Public Use
  Company Number: US-PFIZER INC-2013014601

PATIENT
  Age: 40 Year
  Sex: Male

DRUGS (4)
  1. HALOPERIDOL [Suspect]
     Indication: PSYCHOTIC DISORDER
     Dosage: 2 MG, 2X/DAY
  2. HALOPERIDOL [Suspect]
     Dosage: 30 MG, DAILY
  3. VALPROIC ACID [Concomitant]
     Indication: PSYCHOTIC DISORDER
     Dosage: 500 MG, 3X/DAY
  4. OXAZEPAM [Concomitant]
     Dosage: 15 MG, 1X/DAY

REACTIONS (1)
  - Rhabdomyolysis [Recovering/Resolving]
